FAERS Safety Report 16401584 (Version 2)
Quarter: 2019Q2

REPORT INFORMATION
  Report Type: Spontaneous
  Country: AU (occurrence: AU)
  Receive Date: 20190606
  Receipt Date: 20190620
  Transmission Date: 20190711
  Serious: Yes (Other)
  Sender: FDA-Public Use
  Company Number: AU-B.I. PHARMACEUTICALS,INC./RIDGEFIELD-2019-MI-000427

PATIENT
  Sex: Male

DRUGS (2)
  1. GILOTRIF [Suspect]
     Active Substance: AFATINIB
     Indication: EGFR GENE MUTATION
  2. GILOTRIF [Suspect]
     Active Substance: AFATINIB
     Indication: NON-SMALL CELL LUNG CANCER
     Route: 065

REACTIONS (8)
  - Cardiac failure [Unknown]
  - Musculoskeletal discomfort [Unknown]
  - Decreased appetite [Unknown]
  - Skin disorder [Recovered/Resolved]
  - Cardiac disorder [Unknown]
  - Diarrhoea [Recovered/Resolved]
  - Mouth ulceration [Recovered/Resolved]
  - Dyspnoea [Unknown]
